FAERS Safety Report 4577876-0 (Version None)
Quarter: 2005Q1

REPORT INFORMATION
  Report Type: 
  Country: None (occurrence: None)
  Receive Date: 20050209
  Receipt Date: 20050127
  Transmission Date: 20050727
  Serious: Yes (Hospitalization)
  Sender: FDA-Public Use
  Company Number: 2005-00366

PATIENT
  Age: 84 Year
  Sex: Male

DRUGS (11)
  1. TRELSTAR LA (WATSON LABORATORIES) (TRIPTOLEPTIN PAMOATE) INJECTABLE SU [Suspect]
     Indication: PROSTATE CANCER METASTATIC
     Dosage: INTRAMUSCULAR
     Route: 030
     Dates: end: 20040620
  2. CASODEX [Suspect]
     Indication: PROSTATE CANCER METASTATIC
     Dosage: ORAL
     Route: 048
  3. MORPHINE SULFATE [Suspect]
     Indication: METASTATIC PAIN
     Dosage: 60 MG, DAILY, ORAL
     Route: 048
     Dates: start: 20040823
  4. SINTROM [Concomitant]
  5. RENITEC (ENALAPRIL) [Concomitant]
  6. FUROSEMIDE (FUROSEMIDE) [Concomitant]
  7. ISOPTIN [Concomitant]
  8. DIGOXIN [Concomitant]
  9. HYPERIUM (RILMENIDINE) [Concomitant]
  10. TORENTAL (PENTOXIFYLLINE) [Concomitant]
  11. FENOFIBRATE [Concomitant]

REACTIONS (2)
  - DEEP VEIN THROMBOSIS [None]
  - PHLEBITIS DEEP [None]
